FAERS Safety Report 20212508 (Version 9)
Quarter: 2023Q1

REPORT INFORMATION
  Report Type: Spontaneous
  Country: US (occurrence: US)
  Receive Date: 20211221
  Receipt Date: 20230310
  Transmission Date: 20230418
  Serious: Yes (Hospitalization, Other)
  Sender: FDA-Public Use
  Company Number: US-PFIZER INC-202101752661

PATIENT
  Age: 83 Year
  Sex: Female

DRUGS (2)
  1. XELJANZ [Suspect]
     Active Substance: TOFACITINIB CITRATE
     Indication: Rheumatoid arthritis
     Dosage: 5 MG, 2X/DAY
     Route: 048
     Dates: start: 201801
  2. XELJANZ [Suspect]
     Active Substance: TOFACITINIB CITRATE
     Dosage: 5 MG, 1X/DAY
     Route: 048
     Dates: start: 201801, end: 20221228

REACTIONS (60)
  - Arthralgia [Not Recovered/Not Resolved]
  - Escherichia infection [Unknown]
  - Fracture [Unknown]
  - Joint effusion [Unknown]
  - Joint swelling [Unknown]
  - Adrenal disorder [Unknown]
  - Back injury [Unknown]
  - Blood iron abnormal [Unknown]
  - Chronic kidney disease [Unknown]
  - Disease recurrence [Unknown]
  - Dysstasia [Unknown]
  - Fall [Unknown]
  - Gait disturbance [Unknown]
  - Haemorrhage [Unknown]
  - Intervertebral disc protrusion [Recovered/Resolved]
  - Knee operation [Unknown]
  - Loss of consciousness [Unknown]
  - Pneumonia [Unknown]
  - Syncope [Unknown]
  - Syncope [Unknown]
  - Thyroid disorder [Unknown]
  - Urinary tract infection [Unknown]
  - Therapeutic product effect incomplete [Unknown]
  - Off label use [Unknown]
  - Product dose omission issue [Unknown]
  - Product dose omission in error [Unknown]
  - Product prescribing error [Unknown]
  - Abdominal discomfort [Not Recovered/Not Resolved]
  - Abdominal pain upper [Recovered/Resolved]
  - Arthritis [Unknown]
  - Arthritis [Unknown]
  - Arthralgia [Unknown]
  - Back pain [Unknown]
  - Balance disorder [Unknown]
  - Condition aggravated [Unknown]
  - Cough [Unknown]
  - COVID-19 [Unknown]
  - Disease recurrence [Unknown]
  - Depression [Unknown]
  - Diarrhoea [Not Recovered/Not Resolved]
  - Discouragement [Unknown]
  - Dizziness [Not Recovered/Not Resolved]
  - Dyspnoea [Not Recovered/Not Resolved]
  - Eye contusion [Unknown]
  - Feeling abnormal [Unknown]
  - Foot deformity [Unknown]
  - Hypotension [Not Recovered/Not Resolved]
  - Illness [Unknown]
  - Infection [Unknown]
  - Malaise [Recovered/Resolved]
  - Malaise [Not Recovered/Not Resolved]
  - Nausea [Not Recovered/Not Resolved]
  - Pain [Unknown]
  - Pain in extremity [Unknown]
  - Palpitations [Not Recovered/Not Resolved]
  - Sensitivity to weather change [Unknown]
  - Spondylitis [Unknown]
  - Tooth fracture [Unknown]
  - Vomiting [Not Recovered/Not Resolved]
  - Large intestine polyp [Unknown]

NARRATIVE: CASE EVENT DATE: 20190101
